FAERS Safety Report 7464386-6 (Version None)
Quarter: 2011Q2

REPORT INFORMATION
  Report Type: 
  Country: None (occurrence: None)
  Receive Date: 20110509
  Receipt Date: 20110408
  Transmission Date: 20111010
  Serious: No
  Sender: FDA-Public Use
  Company Number: DE-JNJFOC-20110403880

PATIENT
  Sex: Female

DRUGS (1)
  1. STELARA [Suspect]
     Indication: PSORIASIS
     Dosage: SINCE 12 MONTHS
     Route: 058

REACTIONS (2)
  - SKIN DISORDER [None]
  - CELL MARKER INCREASED [None]
